FAERS Safety Report 13763603 (Version 1)
Quarter: 2017Q3

REPORT INFORMATION
  Report Type: Spontaneous
  Country: US (occurrence: US)
  Receive Date: 20170718
  Receipt Date: 20170718
  Transmission Date: 20171127
  Serious: Yes (Other)
  Sender: FDA-Public Use
  Company Number: US-BRISTOL-MYERS SQUIBB COMPANY-BMS-2017-062062

PATIENT
  Age: 46 Year

DRUGS (1)
  1. ABILIFY [Suspect]
     Active Substance: ARIPIPRAZOLE
     Indication: POST-TRAUMATIC STRESS DISORDER
     Dosage: UNK(1/2/2.5/5MG)
     Route: 065
     Dates: start: 20100216, end: 201507

REACTIONS (7)
  - Suicide attempt [Unknown]
  - Obsessive-compulsive disorder [Unknown]
  - Suicidal ideation [Unknown]
  - Gambling [Unknown]
  - Eating disorder [Unknown]
  - Compulsive shopping [Unknown]
  - Product use in unapproved indication [Unknown]

NARRATIVE: CASE EVENT DATE: 20170711
